FAERS Safety Report 9897662 (Version 2)
Quarter: 2014Q1

REPORT INFORMATION
  Report Type: Spontaneous
  Country: RO (occurrence: RO)
  Receive Date: 20140214
  Receipt Date: 20140307
  Transmission Date: 20141002
  Serious: Yes (Death)
  Sender: FDA-Public Use
  Company Number: RO-AMGEN-ROUSP2014010455

PATIENT
  Age: 18 Year
  Sex: Female
  Weight: 49 kg

DRUGS (2)
  1. NEULASTA [Suspect]
     Indication: PROPHYLAXIS
     Dosage: 6 MG, 1
     Route: 058
     Dates: start: 20131103, end: 20131103
  2. GRANISETRON [Concomitant]
     Dosage: 6 MG/DAY (1MG)

REACTIONS (1)
  - Sepsis [Fatal]
